FAERS Safety Report 13936758 (Version 1)
Quarter: 2017Q3

REPORT INFORMATION
  Report Type: Spontaneous
  Country: US (occurrence: US)
  Receive Date: 20170905
  Receipt Date: 20170905
  Transmission Date: 20171127
  Serious: Yes (Hospitalization, Other)
  Sender: FDA-Public Use
  Company Number: US-ELI_LILLY_AND_COMPANY-US201708011601

PATIENT
  Sex: Female

DRUGS (3)
  1. HUMALOG [Suspect]
     Active Substance: INSULIN LISPRO
     Indication: TYPE 2 DIABETES MELLITUS
     Dosage: SLIDING SCALE
     Route: 058
  2. LEVEMIR [Concomitant]
     Active Substance: INSULIN DETEMIR
     Indication: TYPE 2 DIABETES MELLITUS
  3. HUMALOG [Suspect]
     Active Substance: INSULIN LISPRO
     Dosage: SLIDING SCALE
     Route: 058

REACTIONS (8)
  - Cerebrovascular accident [Unknown]
  - Brain injury [Unknown]
  - Hypotension [Unknown]
  - Angina pectoris [Unknown]
  - Urinary tract infection [Unknown]
  - Hemiplegia [Unknown]
  - Leukaemia [Unknown]
  - Seizure [Unknown]

NARRATIVE: CASE EVENT DATE: 2014
